FAERS Safety Report 6400575-7 (Version None)
Quarter: 2009Q4

REPORT INFORMATION
  Report Type: 
  Country: None (occurrence: None)
  Receive Date: 20091014
  Receipt Date: 20090925
  Transmission Date: 20100525
  Serious: Yes (Other)
  Sender: FDA-Public Use
  Company Number: PHHY2009JP41656

PATIENT
  Sex: Female

DRUGS (14)
  1. ICL670A ICL+DISTAB [Suspect]
     Indication: APLASTIC ANAEMIA
     Dosage: 250 MG/DAY
     Route: 048
     Dates: start: 20080828, end: 20080903
  2. ICL670A ICL+DISTAB [Suspect]
     Indication: IRON OVERLOAD
     Dosage: 375 MG/DAY
     Route: 048
     Dates: start: 20080904, end: 20080924
  3. ICL670A ICL+DISTAB [Suspect]
     Dosage: 250 MG/DAY
     Route: 048
     Dates: start: 20080925, end: 20081023
  4. ICL670A ICL+DISTAB [Suspect]
     Dosage: 125 MG/DAY
     Route: 048
     Dates: start: 20090122, end: 20090205
  5. ICL670A ICL+DISTAB [Suspect]
     Dosage: 125 MG
     Route: 048
     Dates: start: 20090206, end: 20090316
  6. ICL670A ICL+DISTAB [Suspect]
     Dosage: 125 MG
     Route: 048
     Dates: start: 20090501, end: 20090511
  7. ICL670A ICL+DISTAB [Suspect]
     Dosage: 125 MG
     Route: 048
     Dates: start: 20090602, end: 20090616
  8. KREMEZIN [Concomitant]
     Dosage: 6.0 MG
     Route: 048
  9. P MAGEN [Concomitant]
     Dosage: 3 MG
     Route: 048
     Dates: start: 20080828, end: 20090508
  10. PURSENNID [Concomitant]
     Dosage: 2 DF
     Route: 048
     Dates: start: 20080828, end: 20081214
  11. LAC B [Concomitant]
     Dosage: 3 MG
     Route: 048
  12. NU-LOTAN [Concomitant]
     Dosage: 0.5 DF
     Route: 048
  13. EPOGIN S6000 [Concomitant]
     Dosage: 1DF
     Route: 042
  14. RED BLOOD CELLS, LEUCOCYTE DEPLETED [Concomitant]
     Dosage: 2 UNITS EVERY FOUR WEEKS
     Route: 065
     Dates: start: 20020702, end: 20090521

REACTIONS (5)
  - BLOOD ALKALINE PHOSPHATASE INCREASED [None]
  - BLOOD CREATININE INCREASED [None]
  - BLOOD UREA INCREASED [None]
  - HYPERPHOSPHATASAEMIA [None]
  - RENAL FAILURE [None]
